FAERS Safety Report 21673237 (Version 3)
Quarter: 2023Q2

REPORT INFORMATION
  Report Type: Spontaneous
  Country: US (occurrence: US)
  Receive Date: 20221202
  Receipt Date: 20230524
  Transmission Date: 20230722
  Serious: Yes (Other)
  Sender: FDA-Public Use
  Company Number: US-UCBSA-2022068520

PATIENT
  Age: 28 Year
  Sex: Female
  Weight: 79.864 kg

DRUGS (2)
  1. CIMZIA [Suspect]
     Active Substance: CERTOLIZUMAB PEGOL
     Indication: Psoriatic arthropathy
     Dosage: 200 MILLIGRAM, EV 2 WEEKS(QOW)
     Route: 058
     Dates: start: 20220827
  2. ACRIVASTINE [Concomitant]
     Active Substance: ACRIVASTINE
     Indication: Injection site rash

REACTIONS (4)
  - Psoriatic arthropathy [Not Recovered/Not Resolved]
  - Bacterial infection [Unknown]
  - Injection site rash [Unknown]
  - Drug ineffective [Unknown]

NARRATIVE: CASE EVENT DATE: 20220901
